FAERS Safety Report 13214627 (Version 1)
Quarter: 2017Q1

REPORT INFORMATION
  Report Type: Spontaneous
  Country: US (occurrence: US)
  Receive Date: 20170209
  Receipt Date: 20170209
  Transmission Date: 20170428
  Serious: No
  Sender: FDA-Public Use
  Company Number: US-ALLERGAN-1681635US

PATIENT
  Age: 76 Year
  Sex: Male

DRUGS (2)
  1. BOTOX [Suspect]
     Active Substance: ONABOTULINUMTOXINA
     Indication: DROOLING
  2. BOTOX [Suspect]
     Active Substance: ONABOTULINUMTOXINA
     Indication: SALIVA ALTERED
     Dosage: UNK, SINGLE
     Route: 030
     Dates: start: 20160921, end: 20160921

REACTIONS (3)
  - Tongue discomfort [Not Recovered/Not Resolved]
  - Off label use [Unknown]
  - Dry mouth [Unknown]
